FAERS Safety Report 8339385-2 (Version None)
Quarter: 2012Q2

REPORT INFORMATION
  Report Type: 
  Country: None (occurrence: None)
  Receive Date: 20120502
  Receipt Date: 20120416
  Transmission Date: 20120825
  Serious: Yes (Other)
  Sender: FDA-Public Use
  Company Number: 2012MA003254

PATIENT
  Age: 75 Year
  Sex: Male

DRUGS (13)
  1. FORMOTEROL FUMARATE [Suspect]
  2. FUROSEMIDE [Suspect]
  3. WARFARIN SODIUM [Suspect]
     Indication: ATRIAL FIBRILLATION
  4. ALBUTEROL SULFATE [Suspect]
  5. VERAPAMIL [Suspect]
     Indication: ATRIAL FIBRILLATION
  6. SYMBICORT [Concomitant]
  7. ATORVASTATIN [Suspect]
  8. FORMOTEROL FUMARATE [Suspect]
     Dosage: ;INH
     Route: 055
  9. METFORMIN HYDROCHLORIDE [Suspect]
  10. CYSTEINE HYDROCHLORIDE [Suspect]
  11. SPIRIVA [Concomitant]
  12. PREDNISOLONE [Suspect]
  13. RAMIPRIL [Suspect]
     Indication: PRODUCT USED FOR UNKNOWN INDICATION
     Dosage: 5 MG;QD;

REACTIONS (1)
  - HALLUCINATION [None]
